FAERS Safety Report 7744810-1 (Version None)
Quarter: 2011Q3

REPORT INFORMATION
  Report Type: 
  Country: None (occurrence: None)
  Receive Date: 20110912
  Receipt Date: 20110912
  Transmission Date: 20111222
  Serious: Yes (Hospitalization)
  Sender: FDA-Public Use
  Company Number: None

PATIENT
  Age: 63 Year
  Sex: Male
  Weight: 117.93 kg

DRUGS (1)
  1. ZETIA [Suspect]
     Indication: BLOOD CHOLESTEROL INCREASED
     Dosage: 10 MG
     Dates: start: 20101001, end: 20110101

REACTIONS (11)
  - MYALGIA [None]
  - CHROMATURIA [None]
  - SYNCOPE [None]
  - ARTHRALGIA [None]
  - CHILLS [None]
  - EPISTAXIS [None]
  - ABDOMINAL DISCOMFORT [None]
  - HEADACHE [None]
  - DIZZINESS [None]
  - FATIGUE [None]
  - FALL [None]
